FAERS Safety Report 5989232-9 (Version None)
Quarter: 2008Q4

REPORT INFORMATION
  Report Type: 
  Country: None (occurrence: None)
  Receive Date: 20081210
  Receipt Date: 20081202
  Transmission Date: 20090506
  Serious: Yes (Hospitalization, Other)
  Sender: FDA-Public Use
  Company Number: US-ABBOTT-08P-163-0475679-00

PATIENT
  Sex: Male
  Weight: 82 kg

DRUGS (2)
  1. KALETRA [Suspect]
     Indication: GLIOBLASTOMA MULTIFORME
     Dates: start: 20080830
  2. LEVETIRACETAM [Concomitant]
     Indication: DRUG USE FOR UNKNOWN INDICATION

REACTIONS (3)
  - INTRACRANIAL PRESSURE INCREASED [None]
  - NERVOUS SYSTEM DISORDER [None]
  - VOMITING [None]
